FAERS Safety Report 23912013 (Version 2)
Quarter: 2024Q2

REPORT INFORMATION
  Report Type: Spontaneous
  Country: NZ (occurrence: NZ)
  Receive Date: 20240528
  Receipt Date: 20240614
  Transmission Date: 20240716
  Serious: Yes (Death, Hospitalization, Other)
  Sender: FDA-Public Use
  Company Number: NZ-MYLANLABS-2024M1048435

PATIENT
  Sex: Male

DRUGS (3)
  1. CLOZARIL [Suspect]
     Active Substance: CLOZAPINE
     Indication: Schizophrenia
     Dosage: UNK
     Route: 048
     Dates: start: 20230504
  2. CLOZARIL [Suspect]
     Active Substance: CLOZAPINE
     Indication: Hallucination, visual
     Dosage: 75 MILLIGRAM, QD
     Route: 048
  3. MIDODRINE [Concomitant]
     Active Substance: MIDODRINE
     Dosage: UNK
     Route: 065

REACTIONS (4)
  - Sepsis [Fatal]
  - Fall [Unknown]
  - Femoral neck fracture [Unknown]
  - Off label use [Unknown]
